FAERS Safety Report 5711603-6 (Version None)
Quarter: 2008Q2

REPORT INFORMATION
  Report Type: 
  Country: None (occurrence: None)
  Receive Date: 20080416
  Receipt Date: 20080404
  Transmission Date: 20081010
  Serious: Yes (Disabling)
  Sender: FDA-Public Use
  Company Number: TUK2008A00034

PATIENT
  Age: 41 Year
  Sex: Male

DRUGS (4)
  1. ACTOS [Suspect]
     Indication: HYPERGLYCAEMIA
     Dosage: 30 MG
     Route: 048
     Dates: start: 20071120, end: 20080319
  2. ASPIRIN [Concomitant]
  3. RAMIPRIL [Concomitant]
  4. SIMVASTATIN [Concomitant]

REACTIONS (3)
  - MIGRAINE [None]
  - MOOD SWINGS [None]
  - WEIGHT INCREASED [None]
